FAERS Safety Report 24538370 (Version 1)
Quarter: 2024Q4

REPORT INFORMATION
  Report Type: Spontaneous
  Country: IT (occurrence: IT)
  Receive Date: 20241023
  Receipt Date: 20241023
  Transmission Date: 20250115
  Serious: Yes (Other)
  Sender: ROCHE
  Company Number: None

PATIENT
  Age: 67 Year
  Sex: Male

DRUGS (2)
  1. TOCILIZUMAB [Suspect]
     Active Substance: TOCILIZUMAB
     Indication: Product used for unknown indication
     Route: 065
  2. TECVAYLI [Suspect]
     Active Substance: TECLISTAMAB-CQYV
     Indication: Plasma cell myeloma refractory
     Dosage: FIRST PRIMING DOSE , FULL DOSE
     Route: 058
     Dates: start: 20200622

REACTIONS (7)
  - Respiratory failure [Unknown]
  - Cytokine release syndrome [Unknown]
  - Pyrexia [Unknown]
  - Bone pain [Unknown]
  - Headache [Unknown]
  - Tremor [Unknown]
  - COVID-19 [Unknown]

NARRATIVE: CASE EVENT DATE: 20230701
